FAERS Safety Report 8397432-6 (Version None)
Quarter: 2012Q2

REPORT INFORMATION
  Report Type: 
  Country: None (occurrence: None)
  Receive Date: 20120531
  Receipt Date: 20120519
  Transmission Date: 20120825
  Serious: Yes (Death, Hospitalization, Other)
  Sender: FDA-Public Use
  Company Number: GB-PAR PHARMACEUTICAL, INC-2012SCPR004390

PATIENT

DRUGS (8)
  1. CLARITHROMYCIN [Suspect]
     Indication: ATYPICAL MYCOBACTERIUM TEST POSITIVE
     Dosage: 500 MG, BID
     Route: 065
  2. TEICOPLANIN [Concomitant]
     Indication: PRODUCT USED FOR UNKNOWN INDICATION
     Dosage: 400 MG, OD
     Route: 051
  3. CIPROFLOXACIN EXTENDED RELEASE [Suspect]
     Indication: ATYPICAL MYCOBACTERIUM TEST POSITIVE
     Dosage: 500 MG, BID
     Route: 065
  4. PREDNISOLONE [Suspect]
     Indication: IMMUNOSUPPRESSION
     Dosage: 60 MG, UNKNOWN
     Route: 065
  5. AMIKACIN [Concomitant]
     Indication: DEVICE RELATED INFECTION
     Dosage: 300 MG, UNK
     Route: 065
  6. CYCLOPHOSPHAMIDE [Suspect]
     Indication: IMMUNOSUPPRESSION
     Dosage: 100 MG, OD
     Route: 048
  7. OSELTAMIVIR [Concomitant]
     Indication: PRODUCT USED FOR UNKNOWN INDICATION
     Dosage: 75 MG, BID
     Route: 051
  8. MEROPENEM [Concomitant]
     Indication: PRODUCT USED FOR UNKNOWN INDICATION
     Dosage: 1 G, BID
     Route: 051

REACTIONS (10)
  - LIVER INJURY [None]
  - SEPSIS SYNDROME [None]
  - RENAL FAILURE ACUTE [None]
  - RESPIRATORY FAILURE [None]
  - INFLUENZA A VIRUS TEST POSITIVE [None]
  - DEATH [None]
  - DEVICE RELATED INFECTION [None]
  - CARDIO-RESPIRATORY ARREST [None]
  - RIGHT VENTRICULAR FAILURE [None]
  - ASPERGILLOSIS [None]
